FAERS Safety Report 6428502-7 (Version None)
Quarter: 2009Q4

REPORT INFORMATION
  Report Type: 
  Country: None (occurrence: None)
  Receive Date: 20091102
  Receipt Date: 20091016
  Transmission Date: 20100525
  Serious: Yes (Hospitalization, Other)
  Sender: FDA-Public Use
  Company Number: FR-2009-2169

PATIENT
  Age: 60 Year
  Sex: Female

DRUGS (8)
  1. NAVELBINE [Suspect]
     Indication: BREAST CANCER
     Dosage: 25 MG/M2 IV
     Route: 042
     Dates: start: 20090220, end: 20090101
  2. HERCEPTIN [Suspect]
     Indication: BREAST CANCER
     Dosage: 6 MG/KG IV
     Route: 042
     Dates: start: 20090220, end: 20090220
  3. NEXIUM [Concomitant]
  4. ZOLOFT [Concomitant]
  5. STILNOX [Concomitant]
  6. SPASFON [Concomitant]
  7. IMODIUM [Concomitant]
  8. QUESTRAN [Concomitant]

REACTIONS (9)
  - ABDOMINAL DISTENSION [None]
  - ABDOMINAL PAIN [None]
  - ASTHENIA [None]
  - DEHYDRATION [None]
  - DIARRHOEA [None]
  - HEADACHE [None]
  - NAUSEA [None]
  - UNEVALUABLE EVENT [None]
  - VOMITING [None]
